FAERS Safety Report 24089318 (Version 1)
Quarter: 2024Q3

REPORT INFORMATION
  Report Type: Spontaneous
  Country: FR (occurrence: FR)
  Receive Date: 20240715
  Receipt Date: 20240715
  Transmission Date: 20241017
  Serious: Yes (Hospitalization)
  Sender: AUROBINDO
  Company Number: FR-AFSSAPS-BX2024000816

PATIENT
  Age: 82 Year
  Sex: Female

DRUGS (1)
  1. VALPROIC ACID [Suspect]
     Active Substance: VALPROIC ACID
     Indication: Product used for unknown indication
     Dosage: 750 MILLIGRAM, ONCE A DAY
     Route: 048
     Dates: start: 20240308

REACTIONS (1)
  - Nervous system disorder [Recovering/Resolving]

NARRATIVE: CASE EVENT DATE: 20240309
